FAERS Safety Report 23304212 (Version 1)
Quarter: 2023Q4

REPORT INFORMATION
  Report Type: Spontaneous
  Country: US (occurrence: US)
  Receive Date: 20231218
  Receipt Date: 20231218
  Transmission Date: 20240110
  Serious: Yes (Other)
  Sender: FDA-Public Use
  Company Number: US-STRIDES ARCOLAB LIMITED-2023SP018675

PATIENT
  Age: 83 Year
  Sex: Female

DRUGS (16)
  1. DEXAMETHASONE [Suspect]
     Active Substance: DEXAMETHASONE
     Indication: Plasma cell myeloma
     Dosage: 20 MILLIGRAM/ WEEK, CYCLICAL
     Route: 048
     Dates: start: 201909
  2. DEXAMETHASONE [Suspect]
     Active Substance: DEXAMETHASONE
     Dosage: UNK
     Route: 065
  3. PREDNISOLONE [Suspect]
     Active Substance: PREDNISOLONE
     Indication: Aplasia pure red cell
     Dosage: UNK
     Route: 065
  4. PREDNISOLONE [Suspect]
     Active Substance: PREDNISOLONE
     Indication: DNMT3A gene mutation
     Dosage: UNK (DOSE INCREASED)
     Route: 065
  5. CYCLOSPORINE [Suspect]
     Active Substance: CYCLOSPORINE
     Indication: Aplasia pure red cell
     Dosage: UNK
     Route: 065
  6. CYCLOSPORINE [Suspect]
     Active Substance: CYCLOSPORINE
     Indication: DNMT3A gene mutation
     Dosage: UNK (INCREASED DOSE)
     Route: 065
  7. DARATUMUMAB [Suspect]
     Active Substance: DARATUMUMAB
     Indication: Plasma cell myeloma
     Dosage: 16 MILLIGRAM/KILOGRAM, CYCLICAL
     Route: 042
     Dates: start: 201909, end: 202101
  8. DARATUMUMAB [Suspect]
     Active Substance: DARATUMUMAB
     Dosage: UNK (TREATMENT WITH DARATUMUMAB WAS SWITCHED TO THE SC DARATUMUMAB/HYALURONIDASE IN JAN 2021)
     Route: 042
     Dates: end: 202101
  9. LENALIDOMIDE [Suspect]
     Active Substance: LENALIDOMIDE
     Indication: Plasma cell myeloma
     Dosage: 25 MILLIGRAM, CYCLICAL
     Route: 048
     Dates: start: 201909
  10. LENALIDOMIDE [Suspect]
     Active Substance: LENALIDOMIDE
     Dosage: 10 MILLIGRAM, CYCLICAL
     Route: 048
     Dates: start: 2019, end: 201912
  11. EPOETIN ALFA [Suspect]
     Active Substance: ERYTHROPOIETIN
     Indication: Aplasia pure red cell
     Dosage: UNK/ WEEK
     Route: 065
     Dates: start: 202105
  12. EPOETIN ALFA [Suspect]
     Active Substance: ERYTHROPOIETIN
     Indication: DNMT3A gene mutation
  13. ASPIRIN [Concomitant]
     Active Substance: ASPIRIN
     Indication: Thrombosis prophylaxis
     Dosage: 81 MILLIGRAM/DAY
     Route: 065
     Dates: start: 201912
  14. DARATUMUMAB\HYALURONIDASE-FIHJ [Concomitant]
     Active Substance: DARATUMUMAB\HYALURONIDASE-FIHJ
     Indication: Plasma cell myeloma
     Dosage: UNK  (ONCE EVERY 4 WEEKS)
     Route: 058
     Dates: start: 202101
  15. RIVAROXABAN [Concomitant]
     Active Substance: RIVAROXABAN
     Indication: Deep vein thrombosis
     Dosage: UNK
     Route: 065
  16. BORTEZOMIB [Concomitant]
     Active Substance: BORTEZOMIB
     Indication: Plasma cell myeloma
     Dosage: UNK
     Route: 065

REACTIONS (5)
  - Pancytopenia [Unknown]
  - Drug ineffective [Unknown]
  - Disease recurrence [Unknown]
  - Diarrhoea [Not Recovered/Not Resolved]
  - Off label use [Unknown]

NARRATIVE: CASE EVENT DATE: 20190101
